FAERS Safety Report 7610602-7 (Version None)
Quarter: 2011Q3

REPORT INFORMATION
  Report Type: 
  Country: None (occurrence: None)
  Receive Date: 20110707
  Receipt Date: 20110622
  Transmission Date: 20111222
  Serious: Yes (Other)
  Sender: FDA-Public Use
  Company Number: GER/UKI/11/0018779

PATIENT
  Age: 51 Year
  Sex: Male

DRUGS (10)
  1. FERROUS SULFATE TAB [Concomitant]
  2. VALPROATE SODIUM [Concomitant]
  3. VITAMIN B COMP STRONG (NEUROBION) [Concomitant]
  4. OMEPRAZOLE [Suspect]
     Indication: CEREBRAL THROMBOSIS
     Dosage: 40 MG, 1 IN 1 D, ORAL
     Route: 048
  5. PHENYTOIN SODIUM [Concomitant]
  6. NARATRIPTAN [Concomitant]
  7. PYRIDOXINE HCL [Concomitant]
  8. FOLIC ACID [Concomitant]
  9. LEVETIRACETAM [Concomitant]
  10. GAVISCON ADVANCE SF ORAL SUSP (GAVISCON ADVANCE) [Concomitant]

REACTIONS (2)
  - INSOMNIA [None]
  - EPILEPSY [None]
